FAERS Safety Report 19112083 (Version 1)
Quarter: 2021Q2

REPORT INFORMATION
  Report Type: Spontaneous
  Country: US (occurrence: US)
  Receive Date: 20210409
  Receipt Date: 20210409
  Transmission Date: 20210717
  Serious: No
  Sender: FDA-Public Use
  Company Number: None

PATIENT
  Age: 51 Year
  Sex: Male
  Weight: 89.36 kg

DRUGS (1)
  1. IXEKIZUMAB (IXEKIZUMAB 80MG/ML AUTO INJECTOR) [Suspect]
     Active Substance: IXEKIZUMAB
     Indication: PAIN
     Dosage: ?          OTHER FREQUENCY:UNKNOWN;?
     Route: 058
     Dates: start: 20201102, end: 20201204

REACTIONS (2)
  - Angioedema [None]
  - Oral pruritus [None]

NARRATIVE: CASE EVENT DATE: 20201204
